FAERS Safety Report 8280609-8 (Version None)
Quarter: 2012Q2

REPORT INFORMATION
  Report Type: 
  Country: None (occurrence: None)
  Receive Date: 20120412
  Receipt Date: 20110808
  Transmission Date: 20120825
  Serious: No
  Sender: FDA-Public Use
  Company Number: GB-ASTRAZENECA-2011SE31398

PATIENT
  Age: 45 Year
  Sex: Female

DRUGS (1)
  1. NEXIUM [Suspect]
     Route: 048

REACTIONS (4)
  - MOOD ALTERED [None]
  - ILL-DEFINED DISORDER [None]
  - IMPAIRED WORK ABILITY [None]
  - GASTROOESOPHAGEAL REFLUX DISEASE [None]
